FAERS Safety Report 6637346-2 (Version None)
Quarter: 2010Q1

REPORT INFORMATION
  Report Type: 
  Country: None (occurrence: None)
  Receive Date: 20100311
  Receipt Date: 20100226
  Transmission Date: 20100710
  Serious: Yes (Hospitalization)
  Sender: FDA-Public Use
  Company Number: FABR-1001185

PATIENT
  Age: 44 Year
  Sex: Male
  Weight: 75 kg

DRUGS (1)
  1. FABRAZYME [Suspect]
     Indication: FABRY'S DISEASE
     Dosage: 0.3 MG/KG, Q3W, INTRAVENOUS
     Route: 042

REACTIONS (4)
  - ARTHROPATHY [None]
  - CARDIAC DISORDER [None]
  - INFLAMMATION [None]
  - WOUND INFECTION BACTERIAL [None]
